FAERS Safety Report 12844527 (Version 2)
Quarter: 2017Q1

REPORT INFORMATION
  Report Type: Spontaneous
  Country: US (occurrence: US)
  Receive Date: 20161013
  Receipt Date: 20170120
  Transmission Date: 20170428
  Serious: Yes (Other)
  Sender: FDA-Public Use
  Company Number: US-BIOGEN-2016BI00303252

PATIENT
  Age: 59 Year
  Sex: Male
  Weight: 82.63 kg

DRUGS (1)
  1. TYSABRI [Suspect]
     Active Substance: NATALIZUMAB
     Indication: MULTIPLE SCLEROSIS
     Route: 042

REACTIONS (4)
  - Essential hypertension [Unknown]
  - Tumefactive multiple sclerosis [Unknown]
  - Nuclear magnetic resonance imaging brain abnormal [Unknown]
  - Urinary retention [Unknown]

NARRATIVE: CASE EVENT DATE: 20120410
